FAERS Safety Report 6480014-0 (Version None)
Quarter: 2009Q4

REPORT INFORMATION
  Report Type: 
  Country: None (occurrence: None)
  Receive Date: 20091208
  Receipt Date: 20091130
  Transmission Date: 20100525
  Serious: Yes (Other)
  Sender: FDA-Public Use
  Company Number: BR-ROCHE-672387

PATIENT
  Sex: Female
  Weight: 58 kg

DRUGS (1)
  1. ROACUTAN [Suspect]
     Indication: ACNE
     Dosage: 2 CAPSULES OF 20 MG AFTER LUNCH
     Route: 048
     Dates: start: 20090701, end: 20091014

REACTIONS (2)
  - HEPATITIS [None]
  - MUSCLE DISORDER [None]
